FAERS Safety Report 13542060 (Version 1)
Quarter: 2017Q2

REPORT INFORMATION
  Report Type: Report from Study
  Country: US (occurrence: US)
  Receive Date: 20170512
  Receipt Date: 20170512
  Transmission Date: 20170830
  Serious: Yes (Death, Hospitalization)
  Sender: FDA-Public Use
  Company Number: US-ACTELION-A-US2013-84458

PATIENT
  Age: 67 Year
  Sex: Female

DRUGS (11)
  1. PANTOPRAZOLE [Concomitant]
     Active Substance: PANTOPRAZOLE
  2. SILDENAFIL. [Concomitant]
     Active Substance: SILDENAFIL
  3. LEVOTHYROXINE. [Concomitant]
     Active Substance: LEVOTHYROXINE
  4. COUMADIN [Concomitant]
     Active Substance: WARFARIN SODIUM
  5. OLANZAPINE. [Concomitant]
     Active Substance: OLANZAPINE
  6. TRACLEER [Suspect]
     Active Substance: BOSENTAN
     Indication: PULMONARY ARTERIAL HYPERTENSION
     Dosage: 125 MG, BID
     Route: 048
     Dates: end: 20170409
  7. XIFAXAN [Concomitant]
     Active Substance: RIFAXIMIN
  8. CARVEDILOL. [Concomitant]
     Active Substance: CARVEDILOL
  9. LACTULOSE. [Concomitant]
     Active Substance: LACTULOSE
  10. TRAMADOL. [Concomitant]
     Active Substance: TRAMADOL
  11. SPIRONOLACTONE. [Concomitant]
     Active Substance: SPIRONOLACTONE

REACTIONS (2)
  - Mental disorder [Unknown]
  - Death [Fatal]

NARRATIVE: CASE EVENT DATE: 20130424
